FAERS Safety Report 5821106-6 (Version None)
Quarter: 2008Q3

REPORT INFORMATION
  Report Type: 
  Country: None (occurrence: None)
  Receive Date: 20080724
  Receipt Date: 20080718
  Transmission Date: 20090109
  Serious: Yes (Other)
  Sender: FDA-Public Use
  Company Number: US-WATSON-2008-04379

PATIENT
  Age: 50 Year
  Sex: Female

DRUGS (1)
  1. CEFAZOLIN SODIUM                   09 [Suspect]
     Indication: ESCHERICHIA INFECTION
     Dosage: 1 G, Q24H FOR 7 DAYS
     Route: 042
     Dates: start: 20061001

REACTIONS (2)
  - HYPOPROTHROMBINAEMIA [None]
  - INTERNATIONAL NORMALISED RATIO INCREASED [None]
